FAERS Safety Report 5970351-8 (Version None)
Quarter: 2008Q4

REPORT INFORMATION
  Report Type: 
  Country: None (occurrence: None)
  Receive Date: 20081126
  Receipt Date: 20081119
  Transmission Date: 20090506
  Serious: Yes (Other)
  Sender: FDA-Public Use
  Company Number: GB-PFIZER INC-2008098818

PATIENT
  Age: 36 Year
  Sex: Female
  Weight: 74 kg

DRUGS (3)
  1. CHAMPIX [Suspect]
     Indication: SMOKING CESSATION THERAPY
     Route: 048
     Dates: start: 20081016, end: 20081108
  2. BETAHISTINE HYDROCHLORIDE [Concomitant]
  3. EZETIMIBE [Concomitant]

REACTIONS (2)
  - AGITATED DEPRESSION [None]
  - ANGER [None]
